FAERS Safety Report 6646630-8 (Version None)
Quarter: 2010Q1

REPORT INFORMATION
  Report Type: 
  Country: None (occurrence: None)
  Receive Date: 20100322
  Receipt Date: 20100322
  Transmission Date: 20100710
  Serious: Yes (Hospitalization)
  Sender: FDA-Public Use
  Company Number: None

PATIENT
  Age: 78 Year
  Sex: Male

DRUGS (2)
  1. MORPHINE [Suspect]
     Indication: GOUT
     Dosage: 7.5 MG PRN PO
     Route: 048
     Dates: start: 20090427, end: 20090527
  2. MORPHINE [Suspect]
     Indication: PAIN
     Dosage: 7.5 MG PRN PO
     Route: 048
     Dates: start: 20090427, end: 20090527

REACTIONS (2)
  - NAUSEA [None]
  - VOMITING [None]
